FAERS Safety Report 23372575 (Version 1)
Quarter: 2024Q1

REPORT INFORMATION
  Report Type: Spontaneous
  Country: US (occurrence: US)
  Receive Date: 20240105
  Receipt Date: 20240105
  Transmission Date: 20240410
  Serious: Yes (Other)
  Sender: FDA-Public Use
  Company Number: US-COOPERSURGICAL, INC.-US-2023CPS000101

PATIENT
  Age: 21 Year
  Sex: Female
  Weight: 68.027 kg

DRUGS (1)
  1. PARAGARD T 380A [Suspect]
     Active Substance: COPPER
     Indication: Contraception
     Dosage: UNK
     Route: 015
     Dates: start: 20221221, end: 20230109

REACTIONS (8)
  - Uterine infection [Recovered/Resolved]
  - Complication associated with device [Recovered/Resolved]
  - Lymphadenopathy [Unknown]
  - Uterine cervical pain [Recovered/Resolved]
  - Lactobacillus infection [Recovered/Resolved]
  - Vulvovaginal mycotic infection [Recovered/Resolved]
  - Vaginitis gardnerella [Recovered/Resolved]
  - Bacteroides infection [Recovered/Resolved]

NARRATIVE: CASE EVENT DATE: 20230106
